FAERS Safety Report 25824542 (Version 2)
Quarter: 2025Q4

REPORT INFORMATION
  Report Type: Report from Study
  Country: US (occurrence: US)
  Receive Date: 20250919
  Receipt Date: 20251003
  Transmission Date: 20260118
  Serious: No
  Sender: SANOFI AVENTIS
  Company Number: US-SA-2025SA278725

PATIENT
  Age: 22 Year
  Sex: Female

DRUGS (1)
  1. TZIELD [Suspect]
     Active Substance: TEPLIZUMAB-MZWV
     Indication: Diabetes prophylaxis
     Dosage: 1668.6 UG, QD
     Route: 042
     Dates: start: 20250910, end: 20250923

REACTIONS (9)
  - Eczema [Unknown]
  - Dry skin [Unknown]
  - Rash [Unknown]
  - Skin swelling [Unknown]
  - Postprandial hypoglycaemia [Unknown]
  - Dizziness [Recovered/Resolved]
  - Fatigue [Recovered/Resolved]
  - Vomiting [Unknown]
  - Nausea [Unknown]

NARRATIVE: CASE EVENT DATE: 20250901
